FAERS Safety Report 11064492 (Version 2)
Quarter: 2015Q2

REPORT INFORMATION
  Report Type: Spontaneous
  Country: US (occurrence: US)
  Receive Date: 20150424
  Receipt Date: 20150501
  Transmission Date: 20150821
  Serious: No
  Sender: FDA-Public Use
  Company Number: US-PFIZER INC-2014115019

PATIENT
  Sex: Male

DRUGS (1)
  1. NARDIL [Suspect]
     Active Substance: PHENELZINE SULFATE
     Indication: DEPRESSION
     Dosage: UNK
     Dates: start: 201404

REACTIONS (2)
  - Hypoglycaemia [Unknown]
  - Blood sodium decreased [Unknown]
